FAERS Safety Report 7226024-7 (Version None)
Quarter: 2011Q1

REPORT INFORMATION
  Report Type: 
  Country: None (occurrence: None)
  Receive Date: 20110113
  Receipt Date: 20110110
  Transmission Date: 20110831
  Serious: Yes (Other)
  Sender: FDA-Public Use
  Company Number: TR-GILEAD-2010-0034743

PATIENT
  Age: 60 Year
  Sex: Male
  Weight: 70 kg

DRUGS (3)
  1. OLMESARTAN [Suspect]
     Indication: HYPERTENSION
     Route: 048
     Dates: end: 20101228
  2. INSULIN [Concomitant]
     Indication: DIABETES MELLITUS
  3. VIREAD [Suspect]
     Indication: HEPATITIS B
     Route: 048
     Dates: start: 20081022, end: 20101228

REACTIONS (4)
  - BLOOD CREATININE INCREASED [None]
  - BONE DISORDER [None]
  - OSTEOPENIA [None]
  - PROTEINURIA [None]
